FAERS Safety Report 4632272-2 (Version None)
Quarter: 2005Q2

REPORT INFORMATION
  Report Type: 
  Country: None (occurrence: None)
  Receive Date: 20050411
  Receipt Date: 20050310
  Transmission Date: 20051028
  Serious: Yes (Hospitalization)
  Sender: FDA-Public Use
  Company Number: JP-ROCHE-399573

PATIENT
  Age: 37 Year
  Sex: Female

DRUGS (2)
  1. TAMIFLU [Suspect]
     Indication: INFLUENZA
     Route: 048
     Dates: start: 20050303, end: 20050305
  2. LOXONIN [Concomitant]
     Route: 048
     Dates: start: 20050303

REACTIONS (5)
  - FACE OEDEMA [None]
  - HYPOALBUMINAEMIA [None]
  - MOUTH ULCERATION [None]
  - NEPHRITIS INTERSTITIAL [None]
  - NEPHROTIC SYNDROME [None]
